FAERS Safety Report 11362476 (Version 2)
Quarter: 2015Q3

REPORT INFORMATION
  Report Type: Spontaneous
  Country: FR (occurrence: FR)
  Receive Date: 20150810
  Receipt Date: 20150902
  Transmission Date: 20151125
  Serious: Yes (Life-Threatening, Other)
  Sender: FDA-Public Use
  Company Number: FR-GLAXOSMITHKLINE-FR2015GSK112230

PATIENT
  Age: 63 Year
  Sex: Male

DRUGS (23)
  1. VANCOMYCINE [Concomitant]
     Active Substance: VANCOMYCIN
     Dosage: UNK
     Route: 042
     Dates: start: 20150608, end: 20150623
  2. SODIUM HEPARINE [Concomitant]
     Dosage: 6000 IU, Z
     Dates: start: 20150611, end: 20150624
  3. LOXEN [Concomitant]
     Active Substance: NICARDIPINE HYDROCHLORIDE
     Dosage: 1 UNK, UNK
     Route: 042
     Dates: start: 20150619, end: 20150629
  4. CORTANCYL [Concomitant]
     Active Substance: PREDNISONE
     Dosage: UNK
     Dates: start: 20150701, end: 20150708
  5. ZYLORIC [Concomitant]
     Active Substance: ALLOPURINOL
     Dosage: UNK
     Dates: start: 20150605, end: 20150708
  6. LASILIX [Concomitant]
     Active Substance: FUROSEMIDE
     Dosage: UNK
     Route: 042
     Dates: start: 20150615, end: 20150708
  7. INEXIUM [Concomitant]
     Active Substance: ESOMEPRAZOLE
     Dosage: UNK
     Dates: start: 20150707, end: 20150708
  8. PAMIDRONATE [Concomitant]
     Active Substance: PAMIDRONATE DISODIUM
     Dosage: UNK
     Dates: start: 20150609, end: 20150707
  9. VIDAZA [Concomitant]
     Active Substance: AZACITIDINE
     Indication: ACUTE MYELOID LEUKAEMIA
     Dosage: 170 G, 1D
     Dates: start: 20150618, end: 20150624
  10. AMOXICILLINE [Concomitant]
     Active Substance: AMOXICILLIN
     Indication: LUNG DISORDER
     Dosage: UNK
     Dates: start: 2015
  11. RISORDAN (ISOSORBIDE DINITRATE) [Concomitant]
     Dosage: 1 UNK, UNK
     Dates: start: 20150615, end: 20150618
  12. HYDROCORTISONE. [Concomitant]
     Active Substance: HYDROCORTISONE
     Dosage: UNK
     Dates: start: 20150620, end: 20150629
  13. AMBISOME [Concomitant]
     Active Substance: AMPHOTERICIN B
     Dosage: UNK
     Dates: start: 20150620, end: 20150629
  14. TAZOCILLINE [Suspect]
     Active Substance: PIPERACILLIN SODIUM\TAZOBACTAM SODIUM
     Indication: PRODUCT USED FOR UNKNOWN INDICATION
     Dosage: 4 G, UNK
     Route: 042
     Dates: start: 20150605, end: 20150710
  15. TARGOCID [Concomitant]
     Active Substance: TEICOPLANIN
     Dosage: 400 MG, VA
     Route: 042
     Dates: start: 20150706, end: 20150710
  16. HYDREA [Concomitant]
     Active Substance: HYDROXYUREA
     Dosage: 2 G, BID
     Dates: start: 20150615, end: 20150618
  17. CLAIRYG [Concomitant]
     Active Substance: HUMAN IMMUNOGLOBULIN G
     Dosage: UNK
     Dates: start: 20150701, end: 20150701
  18. PARACETAMOL [Concomitant]
     Active Substance: ACETAMINOPHEN
     Dosage: 1 G, Z
     Dates: start: 20150610
  19. ZOPHREN [Concomitant]
     Active Substance: ONDANSETRON
     Dosage: UNK
     Dates: start: 20150619, end: 20150620
  20. WELLVONE [Concomitant]
     Active Substance: ATOVAQUONE
     Dosage: UNK
     Dates: start: 20150626, end: 20150706
  21. SMOFKABIVEN [Concomitant]
     Active Substance: UNSPECIFIED INGREDIENT
     Dosage: 1477 ML, 1D
     Dates: start: 20150622, end: 20150708
  22. ZELITREX [Suspect]
     Active Substance: VALACYCLOVIR HYDROCHLORIDE
     Indication: PRODUCT USED FOR UNKNOWN INDICATION
     Dosage: 500 MG, BID
     Route: 048
     Dates: start: 20150615, end: 20150709
  23. VFEND [Suspect]
     Active Substance: VORICONAZOLE
     Indication: PRODUCT USED FOR UNKNOWN INDICATION
     Dosage: 642 MG, BID
     Route: 042
     Dates: start: 20150606, end: 20150709

REACTIONS (1)
  - Seizure [Not Recovered/Not Resolved]

NARRATIVE: CASE EVENT DATE: 20150709
